FAERS Safety Report 24399191 (Version 1)
Quarter: 2024Q4

REPORT INFORMATION
  Report Type: Spontaneous
  Country: DZ (occurrence: DZ)
  Receive Date: 20241004
  Receipt Date: 20241004
  Transmission Date: 20250114
  Serious: Yes (Other)
  Sender: MERCK
  Company Number: DZ-009507513-2409DZA010246

PATIENT
  Age: 52 Year
  Sex: Male

DRUGS (3)
  1. RALTEGRAVIR POTASSIUM [Suspect]
     Active Substance: RALTEGRAVIR POTASSIUM
     Indication: HIV infection
     Route: 048
  2. TENOFOVIR [Concomitant]
     Active Substance: TENOFOVIR
     Indication: HIV infection
     Dosage: 1 TABLET DAILY
     Dates: start: 2021, end: 20240920
  3. EMTRICITABINE [Concomitant]
     Active Substance: EMTRICITABINE
     Indication: HIV infection
     Dosage: 1 TABLET DAILY
     Dates: start: 2021

REACTIONS (3)
  - Acute coronary syndrome [Unknown]
  - Viral load abnormal [Unknown]
  - Hypertension [Unknown]

NARRATIVE: CASE EVENT DATE: 20240901
